FAERS Safety Report 5916896-8 (Version None)
Quarter: 2008Q4

REPORT INFORMATION
  Report Type: 
  Country: None (occurrence: None)
  Receive Date: 20081013
  Receipt Date: 20081002
  Transmission Date: 20090506
  Serious: Yes (Death, Hospitalization)
  Sender: FDA-Public Use
  Company Number: FR-WYE-H06318508

PATIENT
  Sex: Male

DRUGS (9)
  1. CORDARONE [Suspect]
     Indication: ATRIAL FIBRILLATION
     Route: 048
     Dates: start: 20070328, end: 20070410
  2. CORDARONE [Suspect]
     Route: 048
     Dates: start: 20070411, end: 20070606
  3. PREVISCAN [Concomitant]
     Dosage: 20 MG THEN 5 MG
     Route: 048
     Dates: start: 20070328
  4. BURINEX [Concomitant]
     Dosage: ^2 UNIT^
     Route: 065
     Dates: start: 20070404, end: 20070406
  5. BURINEX [Concomitant]
     Dosage: 1 UNIT EVERY 1 DAY
     Route: 065
     Dates: start: 20070407
  6. MOPRAL [Concomitant]
     Dosage: NOT PROVIDED
     Route: 048
     Dates: start: 20070328
  7. TAHOR [Concomitant]
     Dosage: NOT PROVIDED
     Route: 048
     Dates: start: 20070328
  8. TRIATEC [Concomitant]
     Route: 048
     Dates: start: 20070328
  9. CARDENSIEL [Concomitant]
     Route: 048
     Dates: start: 20070328, end: 20070404

REACTIONS (4)
  - ACUTE PULMONARY OEDEMA [None]
  - ACUTE RESPIRATORY FAILURE [None]
  - BRONCHITIS [None]
  - PULMONARY FIBROSIS [None]
